FAERS Safety Report 5223936-0 (Version None)
Quarter: 2007Q1

REPORT INFORMATION
  Report Type: 
  Country: None (occurrence: None)
  Receive Date: 20070130
  Receipt Date: 20070118
  Transmission Date: 20070707
  Serious: Yes (Hospitalization)
  Sender: FDA-Public Use
  Company Number: JP-ROCHE-474268

PATIENT
  Age: 4 Year
  Sex: Male
  Weight: 18 kg

DRUGS (10)
  1. TAMIFLU [Suspect]
     Dosage: DRUG REPORTED AS TAMIFLU DRY SYRUP 3 %.
     Route: 048
     Dates: start: 20050302, end: 20050302
  2. TAMIFLU [Suspect]
     Route: 048
     Dates: start: 20050303, end: 20050306
  3. TAMIFLU [Suspect]
     Route: 048
     Dates: start: 20050307, end: 20050307
  4. ASVERIN [Concomitant]
     Dosage: GENERIC REPORTED AS TIPEPIDINE HIBENZATE.
     Route: 048
     Dates: start: 20050302, end: 20050307
  5. PERIACTIN [Concomitant]
     Route: 048
     Dates: start: 20050302, end: 20050307
  6. MUCODYNE [Concomitant]
     Route: 048
     Dates: start: 20050302, end: 20050307
  7. BERACHIN [Concomitant]
     Route: 048
     Dates: start: 20050302, end: 20050307
  8. WIDECILLIN [Concomitant]
     Route: 048
     Dates: start: 20050304, end: 20050308
  9. ADSORBIN [Concomitant]
     Route: 048
     Dates: start: 20050304, end: 20050308
  10. MIYA BM [Concomitant]
     Route: 048
     Dates: start: 20050304, end: 20050308

REACTIONS (2)
  - HYPERCHOLESTEROLAEMIA [None]
  - NEPHROTIC SYNDROME [None]
